FAERS Safety Report 4905993-1 (Version None)
Quarter: 2006Q1

REPORT INFORMATION
  Report Type: 
  Country: None (occurrence: None)
  Receive Date: 20060206
  Receipt Date: 20060123
  Transmission Date: 20060701
  Serious: Yes (Disabling, Other)
  Sender: FDA-Public Use
  Company Number: 2006011700

PATIENT
  Age: 6 Year
  Sex: Male

DRUGS (3)
  1. ZYRTEC [Suspect]
     Indication: RHINITIS ALLERGIC
     Dosage: SEE IMAGE
     Dates: start: 20040101
  2. FISH OIL (FISH OIL) [Concomitant]
  3. DECONGESTANTS AND ANTIALLERGICS (DECONGESTANTS AND ANTIALLERGICS ) [Concomitant]

REACTIONS (4)
  - DEAFNESS [None]
  - EAR INFECTION [None]
  - HYPOACUSIS [None]
  - TINNITUS [None]
